FAERS Safety Report 4265219-1 (Version None)
Quarter: 2004Q1

REPORT INFORMATION
  Report Type: 
  Country: None (occurrence: None)
  Receive Date: 20040106
  Receipt Date: 20040106
  Transmission Date: 20041129
  Serious: Yes (Hospitalization)
  Sender: FDA-Public Use
  Company Number: None

PATIENT
  Sex: Female
  Weight: 55.7924 kg

DRUGS (13)
  1. VENOFER [Suspect]
     Dosage: SEE IMAGE
     Dates: start: 20030108
  2. VENOFER [Suspect]
     Dosage: SEE IMAGE
     Dates: start: 20030113
  3. ATENOLOL [Concomitant]
  4. CA++ [Concomitant]
  5. VIT E [Concomitant]
  6. PROTONIX [Concomitant]
  7. PLAVIX [Concomitant]
  8. DARVOCET [Concomitant]
  9. PROVERA [Concomitant]
  10. ESTROPIPATE [Concomitant]
  11. LISINOPRIL [Concomitant]
  12. PAXIL [Concomitant]
  13. LIPITOR [Concomitant]

REACTIONS (4)
  - DIZZINESS [None]
  - NAUSEA [None]
  - OEDEMA [None]
  - OEDEMA PERIPHERAL [None]
